FAERS Safety Report 5454086-6 (Version None)
Quarter: 2007Q3

REPORT INFORMATION
  Report Type: 
  Country: None (occurrence: None)
  Receive Date: 20070917
  Receipt Date: 20070709
  Transmission Date: 20080115
  Serious: Yes (Hospitalization)
  Sender: FDA-Public Use
  Company Number: US-ASTRAZENECA-2006UW08996

PATIENT
  Age: 377 Month
  Sex: Male

DRUGS (3)
  1. SEROQUEL [Suspect]
     Indication: BIPOLAR DISORDER
     Route: 048
     Dates: start: 20040501, end: 20040901
  2. RISPERDAL [Suspect]
     Indication: BIPOLAR DISORDER
     Dates: start: 20040301, end: 20040401
  3. ZYPREXA [Suspect]
     Indication: BIPOLAR DISORDER
     Dates: start: 20050101, end: 20050301

REACTIONS (2)
  - DIABETES MELLITUS [None]
  - PANCREATITIS [None]
